FAERS Safety Report 21998020 (Version 4)
Quarter: 2023Q2

REPORT INFORMATION
  Report Type: Other
  Country: DE (occurrence: None)
  Receive Date: 20230216
  Receipt Date: 20230530
  Transmission Date: 20230722
  Serious: No
  Sender: FDA-Public Use
  Company Number: DE-ROCHE-3286723

PATIENT
  Age: 35 Year
  Sex: Female
  Weight: 72 kg

DRUGS (16)
  1. OCRELIZUMAB [Suspect]
     Active Substance: OCRELIZUMAB
     Indication: Relapsing multiple sclerosis
     Route: 042
     Dates: start: 20181203, end: 20181217
  2. OCRELIZUMAB [Suspect]
     Active Substance: OCRELIZUMAB
     Route: 042
     Dates: start: 20190618, end: 20220217
  3. OCRELIZUMAB [Suspect]
     Active Substance: OCRELIZUMAB
     Route: 042
     Dates: start: 20230223
  4. IVY EXTRACT [Concomitant]
     Active Substance: IVY EXTRACT
     Dosage: DEFINITION OF THE INTERVAL: AS REQUIRED
     Route: 048
     Dates: start: 20220724, end: 20220804
  5. ESCITALOPRAM [Concomitant]
     Active Substance: ESCITALOPRAM OXALATE
     Indication: Depression
     Route: 048
     Dates: start: 20150629
  6. ALBUTEROL [Concomitant]
     Active Substance: ALBUTEROL
     Indication: Influenza
     Dosage: DEFINITION OF THE INTERVAL: AS REQUIRED
     Route: 055
     Dates: start: 202212, end: 20230101
  7. METHYPRED [Concomitant]
     Indication: Premedication
     Route: 042
     Dates: start: 20181203, end: 20181217
  8. METHYPRED [Concomitant]
     Route: 042
     Dates: start: 20190618
  9. CHOLECALCIFEROL [Concomitant]
     Active Substance: CHOLECALCIFEROL
     Indication: Vitamin D deficiency
     Route: 048
     Dates: start: 2015
  10. COMIRNATY [Concomitant]
     Active Substance: TOZINAMERAN
     Indication: COVID-19 prophylaxis
     Route: 030
     Dates: start: 20210520, end: 20210520
  11. COMIRNATY [Concomitant]
     Active Substance: TOZINAMERAN
     Route: 030
     Dates: start: 20220711, end: 20220711
  12. COMIRNATY [Concomitant]
     Active Substance: TOZINAMERAN
     Route: 030
     Dates: start: 20210701, end: 20210701
  13. CEFPODOXIME [Concomitant]
     Active Substance: CEFPODOXIME
     Indication: Sinusitis
     Route: 048
     Dates: start: 20220805
  14. SPIKEVAX [Concomitant]
     Active Substance: ELASOMERAN
     Indication: COVID-19 prophylaxis
     Route: 030
     Dates: start: 20220109, end: 20220109
  15. DIMETHINDENE MALEATE [Concomitant]
     Active Substance: DIMETHINDENE MALEATE
     Indication: Premedication
     Route: 042
     Dates: start: 20181203, end: 20181217
  16. DIMETHINDENE MALEATE [Concomitant]
     Active Substance: DIMETHINDENE MALEATE
     Route: 042
     Dates: start: 20190618

REACTIONS (4)
  - Phobic postural vertigo [Not Recovered/Not Resolved]
  - Urinary tract infection [Recovered/Resolved]
  - Blood creatine phosphokinase increased [Unknown]
  - Influenza [Recovered/Resolved]

NARRATIVE: CASE EVENT DATE: 20221201
